FAERS Safety Report 24098102 (Version 2)
Quarter: 2025Q3

REPORT INFORMATION
  Report Type: Spontaneous
  Country: GB (occurrence: GB)
  Receive Date: 20240716
  Receipt Date: 20250807
  Transmission Date: 20251020
  Serious: Yes (Hospitalization, Other)
  Sender: INCYTE
  Company Number: GB-002147023-NVSC2024GB108313

PATIENT

DRUGS (3)
  1. RUXOLITINIB [Suspect]
     Active Substance: RUXOLITINIB
     Indication: Myelofibrosis
  2. EXJADE [Suspect]
     Active Substance: DEFERASIROX
     Indication: Myelofibrosis
     Dosage: 360 MG, BID
  3. WARFARIN [Concomitant]
     Active Substance: WARFARIN
     Indication: Aortic valve replacement

REACTIONS (2)
  - Anaemia [Recovered/Resolved]
  - Gastrointestinal haemorrhage [Recovered/Resolved]
